FAERS Safety Report 10169121 (Version 1)
Quarter: 2014Q2

REPORT INFORMATION
  Report Type: Spontaneous
  Country: US (occurrence: US)
  Receive Date: 20140513
  Receipt Date: 20140513
  Transmission Date: 20141212
  Serious: No
  Sender: FDA-Public Use
  Company Number: US-TARO-2013P1005405

PATIENT
  Age: 20 Month
  Sex: Female
  Weight: 13.15 kg

DRUGS (1)
  1. CETIRIZINE HCL ORAL SOLUTION ALLERGY 1 MG/ML OTC [Suspect]
     Route: 048
     Dates: start: 20130430, end: 20130430

REACTIONS (2)
  - Diarrhoea [Recovered/Resolved]
  - Gastroenteritis viral [Recovering/Resolving]
